FAERS Safety Report 5967458-8 (Version None)
Quarter: 2008Q4

REPORT INFORMATION
  Report Type: 
  Country: None (occurrence: None)
  Receive Date: 20081125
  Receipt Date: 20081113
  Transmission Date: 20090506
  Serious: Yes (Other)
  Sender: FDA-Public Use
  Company Number: US-PFIZER INC-2008096859

PATIENT
  Sex: Female
  Weight: 84.8 kg

DRUGS (16)
  1. ZITHROMAX [Suspect]
     Indication: LARYNGITIS
     Dates: start: 20080811
  2. CHANTIX [Suspect]
     Indication: SMOKING CESSATION THERAPY
     Dates: start: 20081105, end: 20081107
  3. PREDNISONE TAB [Suspect]
     Indication: LARYNGITIS
     Dates: start: 20080811
  4. LEXAPRO [Concomitant]
  5. LISINOPRIL [Concomitant]
  6. HYDROCHLOROTHIAZIDE [Concomitant]
  7. VERAPAMIL [Concomitant]
  8. ADDERALL 10 [Concomitant]
  9. TRAZODONE HCL [Concomitant]
  10. SYMBICORT [Concomitant]
  11. AMBIEN [Concomitant]
  12. OMEPRAZOLE [Concomitant]
  13. OXYCONTIN [Concomitant]
  14. OXYFAST [Concomitant]
  15. XANAX [Concomitant]
  16. OXYCODONE HCL [Concomitant]

REACTIONS (6)
  - DRUG INTERACTION [None]
  - EMOTIONAL DISORDER [None]
  - LARYNGEAL CANCER [None]
  - LARYNGEAL OEDEMA [None]
  - TUMOUR HAEMORRHAGE [None]
  - VOCAL CORD PARALYSIS [None]
